FAERS Safety Report 8803150 (Version 2)
Quarter: 2012Q4

REPORT INFORMATION
  Report Type: 
  Country: US (occurrence: US)
  Receive Date: 20120924
  Receipt Date: 20121129
  Transmission Date: 20130627
  Serious: Yes (Other)
  Sender: FDA-Public Use
  Company Number: US-BAYER-2012-098512

PATIENT
  Age: 59 Year
  Sex: Female

DRUGS (2)
  1. BETASERON [Suspect]
     Indication: MS
     Dosage: 0.25 mg, UNK
     Route: 058
     Dates: start: 201209
  2. COPAXONE [Suspect]

REACTIONS (2)
  - Injection site reaction [None]
  - Multiple sclerosis relapse [None]
